FAERS Safety Report 8822173 (Version 2)
Quarter: 2012Q4

REPORT INFORMATION
  Report Type: 
  Country: JP (occurrence: JP)
  Receive Date: 20121003
  Receipt Date: 20121126
  Transmission Date: 20130627
  Serious: Yes (Death, Other)
  Sender: FDA-Public Use
  Company Number: JP-BAYER-2012-099535

PATIENT
  Age: 77 Year
  Sex: Female
  Weight: 58 kg

DRUGS (2)
  1. NEXAVAR [Suspect]
     Indication: CARCINOMA HEPATOCELLULAR
     Dosage: 400 mg, BID
     Route: 048
     Dates: start: 20120827, end: 20120910
  2. KERATINAMIN [Concomitant]
     Indication: HAND-FOOT-AND-MOUTH DISEASE
     Dosage: UNK
     Route: 061

REACTIONS (4)
  - Upper gastrointestinal haemorrhage [Recovering/Resolving]
  - Respiratory arrest [Fatal]
  - Palmar-plantar erythrodysaesthesia syndrome [Recovering/Resolving]
  - Pyrexia [Unknown]
